FAERS Safety Report 4927826-X (Version None)
Quarter: 2006Q1

REPORT INFORMATION
  Report Type: 
  Country: None (occurrence: None)
  Receive Date: 20060222
  Receipt Date: 20060207
  Transmission Date: 20060701
  Serious: Yes (Other)
  Sender: FDA-Public Use
  Company Number: 2006S1001127

PATIENT
  Age: 50 Year
  Sex: Female
  Weight: 68.0396 kg

DRUGS (4)
  1. ESTRADIOL [Suspect]
     Indication: HORMONE REPLACEMENT THERAPY
     Dosage: 2 MG; QD; SUBLI
     Route: 060
     Dates: start: 20050501, end: 20060202
  2. PROGESTERONE [Concomitant]
  3. TESTOSTERONE [Concomitant]
  4. BUPROPION HYDROCHLORIDE [Concomitant]

REACTIONS (6)
  - BLOOD OESTROGEN INCREASED [None]
  - BLOOD PRESSURE INCREASED [None]
  - DRUG DISPENSING ERROR [None]
  - HEADACHE [None]
  - INCORRECT ROUTE OF DRUG ADMINISTRATION [None]
  - MAMMOGRAM ABNORMAL [None]
